FAERS Safety Report 10331381 (Version 2)
Quarter: 2014Q3

REPORT INFORMATION
  Report Type: Spontaneous
  Country: US (occurrence: US)
  Receive Date: 20140722
  Receipt Date: 20140722
  Transmission Date: 20150326
  Serious: Yes (Other)
  Sender: FDA-Public Use
  Company Number: US-DENDREON CORPORATION-2014PROUSA03753

PATIENT
  Age: 73 Year
  Sex: Male
  Weight: 97.52 kg

DRUGS (2)
  1. PROVENGE [Suspect]
     Active Substance: SIPULEUCEL-T
     Indication: PROSTATE CANCER METASTATIC
     Dosage: 250 ML, SINGLE
     Route: 042
     Dates: start: 20140502, end: 20140502
  2. PROVENGE [Suspect]
     Active Substance: SIPULEUCEL-T
     Dosage: 250 ML, SINGLE
     Route: 042
     Dates: start: 20140516, end: 20140516

REACTIONS (14)
  - Thrombophlebitis superficial [Recovering/Resolving]
  - Urinary incontinence [Unknown]
  - Dizziness [Unknown]
  - Blood urea nitrogen/creatinine ratio decreased [Unknown]
  - Eosinophil percentage increased [Unknown]
  - Back pain [Unknown]
  - Arthralgia [Unknown]
  - Paraesthesia [Unknown]
  - Dyspnoea [Unknown]
  - Pruritus [Unknown]
  - Lymphocyte percentage decreased [Unknown]
  - Rash [Recovering/Resolving]
  - Pollakiuria [Unknown]
  - Cough [Unknown]

NARRATIVE: CASE EVENT DATE: 20140516
